FAERS Safety Report 7669672-2 (Version None)
Quarter: 2011Q3

REPORT INFORMATION
  Report Type: 
  Country: None (occurrence: None)
  Receive Date: 20110808
  Receipt Date: 20110801
  Transmission Date: 20111222
  Serious: Yes (Other)
  Sender: FDA-Public Use
  Company Number: US-VERTEX PHARMACEUTICALS INC.-AE-2011-000415

PATIENT
  Sex: Male
  Weight: 83.99 kg

DRUGS (8)
  1. RANITIDINE [Concomitant]
     Indication: DYSPEPSIA
     Route: 048
  2. ZOLOFT [Concomitant]
     Indication: DEPRESSION
     Route: 048
  3. INCIVEK [Suspect]
     Indication: HEPATITIS C
     Route: 048
     Dates: start: 20110705
  4. HYDROCODONE [Concomitant]
     Indication: ANALGESIC THERAPY
     Route: 048
  5. RIBAVIRIN [Concomitant]
     Indication: HEPATITIS C
     Route: 048
     Dates: start: 20110705
  6. PEGASYS [Concomitant]
     Indication: HEPATITIS C
     Route: 058
     Dates: start: 20110705
  7. BUPROPION HCL [Concomitant]
     Indication: ANTIDEPRESSANT THERAPY
     Route: 048
  8. HYDROCHLOROTHIAZIDE [Concomitant]
     Indication: HYPERTENSION
     Route: 048

REACTIONS (10)
  - RASH GENERALISED [None]
  - PURULENT DISCHARGE [None]
  - OEDEMA PERIPHERAL [None]
  - ALOPECIA [None]
  - VOMITING [None]
  - OROPHARYNGEAL BLISTERING [None]
  - ANORECTAL DISCOMFORT [None]
  - NAUSEA [None]
  - RECTAL DISCHARGE [None]
  - PRURITUS [None]
